FAERS Safety Report 7046360-7 (Version None)
Quarter: 2010Q4

REPORT INFORMATION
  Report Type: 
  Country: None (occurrence: None)
  Receive Date: 20101014
  Receipt Date: 20100929
  Transmission Date: 20110411
  Serious: Yes (Other)
  Sender: FDA-Public Use
  Company Number: DE-GENENTECH-307696

PATIENT
  Age: 18 Year
  Sex: Female
  Weight: 66 kg

DRUGS (2)
  1. XOLAIR [Suspect]
     Indication: PRODUCT USED FOR UNKNOWN INDICATION
     Dosage: 300 MG, UNK
  2. XOLAIR [Suspect]
     Dosage: 150 MG, UNK
     Dates: start: 20100917

REACTIONS (2)
  - DIZZINESS [None]
  - HEADACHE [None]
